FAERS Safety Report 19192841 (Version 1)
Quarter: 2021Q2

REPORT INFORMATION
  Report Type: Spontaneous
  Country: US (occurrence: US)
  Receive Date: 20210428
  Receipt Date: 20210428
  Transmission Date: 20210717
  Serious: No
  Sender: FDA-Public Use
  Company Number: US-PERRIGO-20US009555

PATIENT
  Sex: Female

DRUGS (1)
  1. MICONAZOLE 3 COMBINATION PACK [Suspect]
     Active Substance: MICONAZOLE NITRATE
     Indication: VULVOVAGINAL MYCOTIC INFECTION
     Dosage: 200 MG, SINGLE
     Route: 067

REACTIONS (10)
  - Dysuria [Unknown]
  - Nausea [Unknown]
  - Dizziness [Unknown]
  - Blood urine present [Unknown]
  - Vulvovaginal burning sensation [Unknown]
  - Vaginal discharge [Unknown]
  - Constipation [Unknown]
  - Abdominal pain [Unknown]
  - Vulvovaginal pruritus [Unknown]
  - Vulvovaginal swelling [Unknown]
